FAERS Safety Report 7164435-9 (Version None)
Quarter: 2010Q4

REPORT INFORMATION
  Report Type: 
  Country: None (occurrence: None)
  Receive Date: 20101201
  Receipt Date: 20101123
  Transmission Date: 20110411
  Serious: Yes (Death, Life-Threatening, Hospitalization)
  Sender: FDA-Public Use
  Company Number: 494122

PATIENT
  Age: 65 Year
  Sex: Male

DRUGS (4)
  1. CYTARABINE [Suspect]
     Indication: ACUTE MYELOID LEUKAEMIA
     Dosage: 33.2 MG MILLIGRAM(S), 1 DAY, SUBCUTANEOUS; 33.2 MG (1 DAY) SUBCUTANEOUS
     Route: 058
     Dates: start: 20080407, end: 20080416
  2. CYTARABINE [Suspect]
     Indication: ACUTE MYELOID LEUKAEMIA
     Dosage: 33.2 MG MILLIGRAM(S), 1 DAY, SUBCUTANEOUS; 33.2 MG (1 DAY) SUBCUTANEOUS
     Route: 058
     Dates: start: 20080505, end: 20080514
  3. CYTARABINE [Suspect]
     Indication: ACUTE MYELOID LEUKAEMIA
     Dosage: 33.2 MG MILLIGRAM(S), 1 DAY, SUBCUTANEOUS; 33.2 MG (1 DAY) SUBCUTANEOUS
     Route: 058
     Dates: start: 20080407, end: 20080416
  4. CYTARABINE [Suspect]
     Indication: ACUTE MYELOID LEUKAEMIA
     Dosage: 33.2 MG MILLIGRAM(S), 1 DAY, SUBCUTANEOUS; 33.2 MG (1 DAY) SUBCUTANEOUS
     Route: 058
     Dates: start: 20080505, end: 20080514

REACTIONS (25)
  - ABDOMINAL WALL ABSCESS [None]
  - AORTIC CALCIFICATION [None]
  - AORTIC DISORDER [None]
  - CARDIOMEGALY [None]
  - COUGH [None]
  - FEBRILE NEUTROPENIA [None]
  - FLATULENCE [None]
  - FUNGAL TEST POSITIVE [None]
  - GENERAL PHYSICAL HEALTH DETERIORATION [None]
  - HEADACHE [None]
  - HEPATOSPLENOMEGALY [None]
  - HERNIA [None]
  - LEUKAEMIC INFILTRATION PULMONARY [None]
  - LUNG CONSOLIDATION [None]
  - LUNG DISORDER [None]
  - MYALGIA [None]
  - OSTEOPOROSIS [None]
  - PANCYTOPENIA [None]
  - PLEURAL EFFUSION [None]
  - PNEUMONIA [None]
  - PULMONARY HAEMORRHAGE [None]
  - PULMONARY NECROSIS [None]
  - SEPTIC SHOCK [None]
  - SPINAL COMPRESSION FRACTURE [None]
  - SPINAL OSTEOARTHRITIS [None]
